FAERS Safety Report 6079491-9 (Version None)
Quarter: 2009Q1

REPORT INFORMATION
  Report Type: 
  Country: None (occurrence: None)
  Receive Date: 20090216
  Receipt Date: 20090206
  Transmission Date: 20090719
  Serious: Yes (Hospitalization)
  Sender: FDA-Public Use
  Company Number: SE-MERCK-0809SWE00020

PATIENT
  Age: 72 Year
  Sex: Female
  Weight: 38 kg

DRUGS (13)
  1. FOSAMAX [Suspect]
     Indication: OSTEOPOROSIS
     Route: 048
     Dates: start: 20000101, end: 20060101
  2. FOSAMAX [Suspect]
     Route: 048
     Dates: start: 20060101, end: 20070101
  3. [THERAPY UNSPECIFIED] [Concomitant]
     Indication: OSTEOPOROSIS
     Route: 065
     Dates: start: 20000101
  4. TERBUTALINE SULFATE [Concomitant]
     Route: 065
  5. IPRATROPIUM BROMIDE [Concomitant]
     Route: 065
  6. ACETAMINOPHEN [Concomitant]
     Route: 065
  7. RANITIDINE HYDROCHLORIDE [Concomitant]
     Route: 065
  8. BUDESONIDE [Concomitant]
     Route: 065
  9. AMILORIDE HYDROCHLORIDE AND HYDROCHLOROTHIAZIDE [Concomitant]
     Route: 048
  10. DILTIAZEM HYDROCHLORIDE [Concomitant]
     Route: 048
  11. PROPOXYPHENE NAPSYLATE [Concomitant]
     Route: 048
  12. ASPIRIN [Concomitant]
     Route: 048
  13. CALCIUM CARBONATE AND CHOLECALCIFEROL [Concomitant]
     Route: 065

REACTIONS (6)
  - ARTHRALGIA [None]
  - FALL [None]
  - FEMUR FRACTURE [None]
  - GAIT DISTURBANCE [None]
  - IMPAIRED HEALING [None]
  - PAIN IN EXTREMITY [None]
